FAERS Safety Report 11923650 (Version 1)
Quarter: 2016Q1

REPORT INFORMATION
  Report Type: Spontaneous
  Country: US (occurrence: US)
  Receive Date: 20160118
  Receipt Date: 20160118
  Transmission Date: 20160526
  Serious: Yes (Other)
  Sender: FDA-Public Use
  Company Number: ZYD-14-AE-301

PATIENT

DRUGS (1)
  1. MELOXICAM. [Suspect]
     Active Substance: MELOXICAM
     Indication: PAIN

REACTIONS (5)
  - Gastric ulcer [Recovered/Resolved]
  - Gastrointestinal haemorrhage [Recovered/Resolved]
  - Drug ineffective [Recovered/Resolved]
  - Abdominal distension [Recovered/Resolved]
  - Gastritis [Recovered/Resolved]
